FAERS Safety Report 8342733-0 (Version None)
Quarter: 2012Q2

REPORT INFORMATION
  Report Type: 
  Country: None (occurrence: None)
  Receive Date: 20120503
  Receipt Date: 20120409
  Transmission Date: 20120825
  Serious: Yes (Other)
  Sender: FDA-Public Use
  Company Number: 956084

PATIENT
  Age: 38 Year
  Sex: Female

DRUGS (2)
  1. UNSPECIFIED ^HEAD LICE^ PRODUCT [Concomitant]
  2. PERMETHRIN [Suspect]
     Indication: LICE INFESTATION
     Dosage: 1 OZ APPLICATION TO SCALP
     Dates: start: 20120409, end: 20120409

REACTIONS (4)
  - DIZZINESS [None]
  - NAUSEA [None]
  - OVERDOSE [None]
  - TREMOR [None]
